FAERS Safety Report 16040291 (Version 1)
Quarter: 2019Q2

REPORT INFORMATION
  Report Type: Spontaneous
  Country: US (occurrence: US)
  Receive Date: 20190305
  Receipt Date: 20190305
  Transmission Date: 20190711
  Serious: Yes (Hospitalization)
  Sender: FDA-Public Use
  Company Number: None

PATIENT
  Age: 51 Year
  Sex: Female
  Weight: 62.6 kg

DRUGS (1)
  1. LEVOTHYROXINE. [Suspect]
     Active Substance: LEVOTHYROXINE
     Indication: HYPOTHYROIDISM
     Route: 048
     Dates: end: 20190305

REACTIONS (4)
  - Therapeutic product effect incomplete [None]
  - Product physical issue [None]
  - Lethargy [None]
  - Paraesthesia [None]

NARRATIVE: CASE EVENT DATE: 20190305
